FAERS Safety Report 20141132 (Version 4)
Quarter: 2022Q1

REPORT INFORMATION
  Report Type: Report from Study
  Country: IE (occurrence: IE)
  Receive Date: 20211202
  Receipt Date: 20220304
  Transmission Date: 20220423
  Serious: Yes (Hospitalization)
  Sender: FDA-Public Use
  Company Number: IE-BRISTOL-MYERS SQUIBB COMPANY-BMS-2021-116780

PATIENT
  Age: 76 Year
  Sex: Male

DRUGS (4)
  1. NIVOLUMAB [Suspect]
     Active Substance: NIVOLUMAB
     Indication: Renal cell carcinoma
     Dosage: UNK
     Route: 065
     Dates: start: 20211029
  2. IPILIMUMAB [Suspect]
     Active Substance: IPILIMUMAB
     Indication: Renal cell carcinoma
     Dosage: UNK
     Route: 065
     Dates: start: 20211029
  3. MST [MAGNESIUM SALICYLATE] [Concomitant]
     Indication: Product used for unknown indication
     Dosage: UNK
     Route: 065
  4. ORAMORPH SR SUSTAINED RELEASE [Concomitant]
     Active Substance: MORPHINE SULFATE
     Indication: Product used for unknown indication
     Dosage: UNK
     Route: 065

REACTIONS (7)
  - Decreased appetite [Recovering/Resolving]
  - Asthenia [Recovering/Resolving]
  - Hypertonic bladder [Recovering/Resolving]
  - Constipation [Recovered/Resolved]
  - Procedural pain [Not Recovered/Not Resolved]
  - Fatigue [Not Recovered/Not Resolved]
  - Somnolence [Unknown]

NARRATIVE: CASE EVENT DATE: 20211119
